FAERS Safety Report 5005091-5 (Version None)
Quarter: 2006Q2

REPORT INFORMATION
  Report Type: 
  Country: None (occurrence: None)
  Receive Date: 20060516
  Receipt Date: 20060516
  Transmission Date: 20061013
  Serious: Yes (Other)
  Sender: FDA-Public Use
  Company Number: None

PATIENT
  Age: 66 Year
  Sex: Female
  Weight: 77.1115 kg

DRUGS (1)
  1. PREMARIN [Suspect]
     Indication: OESTROGEN REPLACEMENT THERAPY
     Dosage: ONE  EVERY OTHER DAY  MOUTH
     Route: 048
     Dates: start: 19910101, end: 20050510

REACTIONS (3)
  - ARTHROPATHY [None]
  - DIFFICULTY IN WALKING [None]
  - MUSCLE SPASMS [None]
